FAERS Safety Report 8229309-0 (Version None)
Quarter: 2012Q1

REPORT INFORMATION
  Report Type: 
  Country: None (occurrence: None)
  Receive Date: 20120322
  Receipt Date: 20081208
  Transmission Date: 20120608
  Serious: Yes (Hospitalization)
  Sender: FDA-Public Use
  Company Number: US-BRISTOL-MYERS SQUIBB COMPANY-13701198

PATIENT
  Age: 51 Year
  Sex: Female

DRUGS (5)
  1. BUDESONIDE [Suspect]
     Indication: MALIGNANT MELANOMA
     Dates: start: 20070102
  2. MOTRIN [Concomitant]
     Dates: start: 20070102
  3. PROTONIX [Concomitant]
     Dates: start: 20070102
  4. MDX-010 [Suspect]
     Indication: MALIGNANT MELANOMA
     Route: 042
     Dates: start: 20070102, end: 20070213
  5. TYLENOL [Concomitant]
     Dates: start: 20070102

REACTIONS (2)
  - ASPARTATE AMINOTRANSFERASE INCREASED [None]
  - ALANINE AMINOTRANSFERASE INCREASED [None]
